FAERS Safety Report 10452123 (Version 1)
Quarter: 2014Q3

REPORT INFORMATION
  Report Type: Spontaneous
  Country: US (occurrence: US)
  Receive Date: 20140915
  Receipt Date: 20140915
  Transmission Date: 20150326
  Serious: Yes (Hospitalization)
  Sender: FDA-Public Use
  Company Number: US-ROCHE-1459557

PATIENT
  Sex: Female

DRUGS (3)
  1. KLONOPIN [Suspect]
     Active Substance: CLONAZEPAM
     Indication: CONVULSION
     Dosage: 4-6 MG
     Route: 048
  2. KLONOPIN [Suspect]
     Active Substance: CLONAZEPAM
     Indication: INSOMNIA
  3. ADVIL [Concomitant]
     Active Substance: IBUPROFEN
     Route: 065

REACTIONS (5)
  - Musculoskeletal stiffness [Recovered/Resolved]
  - Lupus pneumonitis [Unknown]
  - Drug ineffective [Unknown]
  - Confusional state [Recovered/Resolved]
  - Systemic lupus erythematosus [Not Recovered/Not Resolved]
